FAERS Safety Report 4603631-9 (Version None)
Quarter: 2005Q1

REPORT INFORMATION
  Report Type: 
  Country: None (occurrence: None)
  Receive Date: 20050308
  Receipt Date: 20050223
  Transmission Date: 20050727
  Serious: Yes (Hospitalization)
  Sender: FDA-Public Use
  Company Number: 210326

PATIENT
  Age: 75 Year
  Sex: Male
  Weight: 91 kg

DRUGS (8)
  1. MABTHERA (RITUXIMAB) CONC FOR SOLUTION FOR INFUSION [Suspect]
     Dosage: 750 MG, INTRAVENOUS
     Route: 042
     Dates: start: 20040825, end: 20040825
  2. CYCLOPHOSPHAMIDE [Suspect]
     Dosage: 1000 MG, INTRAVENOUS
     Route: 042
     Dates: start: 20030101, end: 20030101
  3. CYCLOPHOSPHAMIDE [Suspect]
     Dosage: 1000 MG, INTRAVENOUS
     Route: 042
     Dates: start: 20040825, end: 20040825
  4. VINCRISTINE [Suspect]
     Dosage: 1 MG, INTRAVENOUS
     Route: 042
     Dates: start: 20030101, end: 20030101
  5. VINCRISTINE [Suspect]
     Dosage: 1 MG, INTRAVENOUS
     Route: 042
     Dates: start: 20030101, end: 20030101
  6. VINCRISTINE [Suspect]
     Dosage: 1 MG, INTRAVENOUS
     Route: 042
     Dates: start: 20040825, end: 20040825
  7. DOXORUBICIN HCL [Suspect]
     Dosage: 1000 MG, INTRAVENOUS
     Route: 042
     Dates: start: 20040825, end: 20040825
  8. PREDNISONE [Concomitant]

REACTIONS (8)
  - ANAEMIA [None]
  - ASTHENIA [None]
  - BLOOD ALBUMIN INCREASED [None]
  - CREPITATIONS [None]
  - DISEASE PROGRESSION [None]
  - MALAISE [None]
  - NEUTROPENIC SEPSIS [None]
  - OEDEMA [None]
